FAERS Safety Report 4842437-2 (Version None)
Quarter: 2005Q4

REPORT INFORMATION
  Report Type: 
  Country: None (occurrence: None)
  Receive Date: 20051125
  Receipt Date: 20051115
  Transmission Date: 20060501
  Serious: Yes (Other)
  Sender: FDA-Public Use
  Company Number: 2005088657

PATIENT
  Age: 69 Year
  Sex: Male
  Weight: 90.7194 kg

DRUGS (3)
  1. VIAGRA [Suspect]
     Indication: ERECTILE DYSFUNCTION
     Dosage: 1 IN 1 D, ORAL
     Route: 048
     Dates: start: 20040101
  2. TRIMEX (TRIMETHOPRIM) [Suspect]
     Indication: ILL-DEFINED DISORDER
  3. TRIMIX (AMINO ACIDS NOS, FATS NOS, GLUCOSE) [Concomitant]

REACTIONS (11)
  - ATROPHY [None]
  - CATARACT [None]
  - CHOROIDAL NEOVASCULARISATION [None]
  - INTRAOCULAR PRESSURE INCREASED [None]
  - MACULAR DEGENERATION [None]
  - METAMORPHOPSIA [None]
  - RETINAL PIGMENT EPITHELIOPATHY [None]
  - RETINITIS [None]
  - RETINOPATHY [None]
  - VISUAL DISTURBANCE [None]
  - VITREOUS DETACHMENT [None]
